FAERS Safety Report 8614846-7 (Version None)
Quarter: 2012Q3

REPORT INFORMATION
  Report Type: 
  Country: None (occurrence: None)
  Receive Date: 20120823
  Receipt Date: 20120820
  Transmission Date: 20120928
  Serious: Yes (Life-Threatening, Hospitalization)
  Sender: FDA-Public Use
  Company Number: JP-PFIZER INC-2012180619

PATIENT
  Age: 68 Year
  Sex: Female
  Weight: 65 kg

DRUGS (8)
  1. ULGUT [Concomitant]
     Dosage: 200 MG, 2X/DAY
     Route: 048
     Dates: start: 20070530
  2. METALCAPTASE [Concomitant]
     Dosage: 100 MG, 2X/DAY
     Route: 048
     Dates: start: 20070530
  3. FOLIC ACID [Concomitant]
     Dosage: 5 MG, 1X/DAY
     Route: 048
     Dates: start: 20081224
  4. EPIRUBICIN HYDROCHLORIDE [Suspect]
     Indication: BREAST CANCER
     Dosage: UNK
     Route: 048
     Dates: start: 20120404, end: 20120404
  5. PREDNISOLONE [Concomitant]
     Dosage: 2 MG, 1X/DAY
     Route: 048
     Dates: start: 20070530
  6. TERIPARATIDE [Concomitant]
     Dosage: 600 MG, 1X/DAY
     Route: 058
     Dates: start: 20110316, end: 20120501
  7. PYDOXAL [Concomitant]
     Dosage: 20 MG, 2X/DAY
     Route: 048
     Dates: start: 20070530
  8. METHOTREXATE [Concomitant]
     Dosage: (1MG, 0.5MG)/DAY
     Route: 048
     Dates: start: 20070530

REACTIONS (1)
  - ANAPHYLACTIC SHOCK [None]
